FAERS Safety Report 9742763 (Version 1)
Quarter: 2013Q4

REPORT INFORMATION
  Report Type: Spontaneous
  Country: US (occurrence: US)
  Receive Date: 20131210
  Receipt Date: 20131210
  Transmission Date: 20140711
  Serious: No
  Sender: FDA-Public Use
  Company Number: US-ENDO PHARMACEUTICALS INC.-PRED20120054

PATIENT
  Age: 49 Year
  Sex: Female
  Weight: 44.49 kg

DRUGS (1)
  1. PREDNISONE TABLETS 5MG [Suspect]
     Indication: HYPERSENSITIVITY
     Route: 048
     Dates: start: 201209

REACTIONS (2)
  - Lip exfoliation [Not Recovered/Not Resolved]
  - Chapped lips [Not Recovered/Not Resolved]
